FAERS Safety Report 23559227 (Version 1)
Quarter: 2024Q1

REPORT INFORMATION
  Report Type: Spontaneous
  Country: US (occurrence: None)
  Receive Date: 20240222
  Receipt Date: 20240222
  Transmission Date: 20240410
  Serious: Yes (Hospitalization)
  Sender: FDA-Public Use
  Company Number: None

PATIENT
  Age: 74 Year
  Sex: Female
  Weight: 72 kg

DRUGS (9)
  1. BACLOFEN [Suspect]
     Active Substance: BACLOFEN
     Indication: Pain
     Dosage: FREQUENCY : 3 TIMES A DAY;?
     Dates: start: 20240221, end: 20240222
  2. ATORVASTATIN [Concomitant]
     Active Substance: ATORVASTATIN
  3. METOPROLOL [Concomitant]
     Active Substance: METOPROLOL
  4. LOSARTAN [Concomitant]
     Active Substance: LOSARTAN
  5. POTASSIUM [Concomitant]
     Active Substance: POTASSIUM
  6. ASPIRIN [Concomitant]
     Active Substance: ASPIRIN
  7. Gabapintin 300 [Concomitant]
  8. VITAMIN C [Concomitant]
     Active Substance: ASCORBIC ACID
  9. VITAMIN D NOS [Concomitant]
     Active Substance: VITAMIN D NOS

REACTIONS (6)
  - Motor dysfunction [None]
  - Tremor [None]
  - Urinary incontinence [None]
  - Muscular weakness [None]
  - Loss of proprioception [None]
  - Toxicity to various agents [None]

NARRATIVE: CASE EVENT DATE: 20240222
